FAERS Safety Report 8331671-5 (Version None)
Quarter: 2012Q2

REPORT INFORMATION
  Report Type: 
  Country: None (occurrence: None)
  Receive Date: 20120502
  Receipt Date: 20120314
  Transmission Date: 20120825
  Serious: No
  Sender: FDA-Public Use
  Company Number: US-ASTRAZENECA-2012SE17510

PATIENT
  Age: 22 Year
  Sex: Male
  Weight: 99.8 kg

DRUGS (5)
  1. EMMEPROZOLE [Concomitant]
     Indication: GASTROOESOPHAGEAL REFLUX DISEASE
  2. TOPAMAX [Concomitant]
     Indication: MIGRAINE
  3. VITAMIN TAB [Concomitant]
     Indication: MUSCLE BUILDING THERAPY
  4. DICYCLOMINE [Concomitant]
     Indication: MUSCLE SPASMS
  5. ENTOCORT EC [Suspect]
     Indication: CROHN'S DISEASE
     Route: 048
     Dates: end: 20120101

REACTIONS (4)
  - INFLUENZA LIKE ILLNESS [None]
  - THERAPY CESSATION [None]
  - DIZZINESS [None]
  - DIARRHOEA [None]
